FAERS Safety Report 4687125-0 (Version None)
Quarter: 2005Q2

REPORT INFORMATION
  Report Type: 
  Country: None (occurrence: None)
  Receive Date: 20050607
  Receipt Date: 20050525
  Transmission Date: 20051028
  Serious: Yes (Death, Hospitalization, Other)
  Sender: FDA-Public Use
  Company Number: USA050597405

PATIENT
  Age: 73 Year
  Sex: Female
  Weight: 59 kg

DRUGS (2)
  1. HUMULIN N [Suspect]
  2. HUMALOG [Suspect]

REACTIONS (3)
  - CARDIAC FAILURE [None]
  - LOSS OF CONSCIOUSNESS [None]
  - SEPTIC SHOCK [None]
